FAERS Safety Report 4894792-5 (Version None)
Quarter: 2006Q1

REPORT INFORMATION
  Report Type: 
  Country: None (occurrence: None)
  Receive Date: 20060126
  Receipt Date: 20060126
  Transmission Date: 20060701
  Serious: Yes (Hospitalization)
  Sender: FDA-Public Use
  Company Number: None

PATIENT
  Age: 11 Year
  Sex: Male
  Weight: 58.514 kg

DRUGS (2)
  1. FOCALIN XR [Suspect]
     Indication: ATTENTION DEFICIT/HYPERACTIVITY DISORDER
     Dosage: 10 MG   1X DAY   PO
     Route: 048
     Dates: start: 20060117, end: 20060120
  2. FOCALIN XR [Suspect]
     Indication: IMPULSIVE BEHAVIOUR
     Dosage: 10 MG   1X DAY   PO
     Route: 048
     Dates: start: 20060117, end: 20060120

REACTIONS (3)
  - BLOOD URINE PRESENT [None]
  - HYPOMANIA [None]
  - SEXUAL ACTIVITY INCREASED [None]
